FAERS Safety Report 9107508 (Version 1)
Quarter: 2013Q1

REPORT INFORMATION
  Report Type: Spontaneous
  Country: BR (occurrence: BR)
  Receive Date: 20130221
  Receipt Date: 20130221
  Transmission Date: 20140127
  Serious: Yes (Other)
  Sender: FDA-Public Use
  Company Number: PHHY2013BR016160

PATIENT
  Age: 87 Year
  Sex: Female

DRUGS (3)
  1. EXELON [Suspect]
     Dosage: 3 MG, UNK
  2. EXELON [Suspect]
     Dosage: 12 MG, DAILY (2X6 MG CAPSULES PER DAY)
     Route: 048
  3. EXELON [Suspect]
     Dosage: 6 MG, DAILY (2X3 MG CAPSULES PER DAY)

REACTIONS (3)
  - Atrioventricular conduction time shortened [Unknown]
  - Heart rate irregular [Not Recovered/Not Resolved]
  - Hyperhidrosis [Recovering/Resolving]
